FAERS Safety Report 6745459-X (Version None)
Quarter: 2010Q2

REPORT INFORMATION
  Report Type: 
  Country: None (occurrence: None)
  Receive Date: 20100528
  Receipt Date: 20100521
  Transmission Date: 20101027
  Serious: Yes (Death, Hospitalization)
  Sender: FDA-Public Use
  Company Number: IT-BAYER-201024451GPV

PATIENT
  Age: 60 Year
  Sex: Male

DRUGS (6)
  1. NEXAVAR [Suspect]
     Indication: HEPATIC NEOPLASM MALIGNANT
     Dosage: TOTAL DAILY DOSE: 800 MG
     Route: 048
     Dates: start: 20100322, end: 20100329
  2. LANSOPRAZOLE [Concomitant]
     Route: 048
  3. INSULIN HUMAN [Concomitant]
     Route: 058
  4. ASPIRIN [Concomitant]
     Dosage: TOTAL DAILY DOSE: 100 MG
     Route: 048
  5. ZEFFIX [Concomitant]
     Route: 048
  6. HEPSERA [Concomitant]
     Route: 048

REACTIONS (4)
  - COMA [None]
  - MELAENA [None]
  - MYOCARDIAL INFARCTION [None]
  - OESOPHAGEAL VARICES HAEMORRHAGE [None]
